FAERS Safety Report 15606355 (Version 1)
Quarter: 2018Q4

REPORT INFORMATION
  Report Type: Spontaneous
  Country: IT (occurrence: IT)
  Receive Date: 20181112
  Receipt Date: 20181112
  Transmission Date: 20190205
  Serious: Yes (Other)
  Sender: FDA-Public Use
  Company Number: IT-ACCORD-091891

PATIENT
  Age: 74 Year
  Sex: Female
  Weight: 0 kg

DRUGS (12)
  1. DEFLAN [Concomitant]
     Active Substance: DEFLAZACORT
  2. ROACTEMRA [Suspect]
     Active Substance: TOCILIZUMAB
     Indication: RHEUMATOID ARTHRITIS
     Route: 042
     Dates: start: 20101101
  3. ALENDRONIC ACID [Concomitant]
     Active Substance: ALENDRONIC ACID
  4. FOLINA [Concomitant]
     Active Substance: FOLIC ACID
  5. METHOTREXATE. [Suspect]
     Active Substance: METHOTREXATE
     Indication: RHEUMATOID ARTHRITIS
     Route: 030
     Dates: start: 20101101
  6. METFORMIN [Concomitant]
     Active Substance: METFORMIN HYDROCHLORIDE
  7. DULOXETINE. [Concomitant]
     Active Substance: DULOXETINE
  8. DIBASE [Concomitant]
     Active Substance: CHOLECALCIFEROL
  9. SAXAGLIPTIN [Concomitant]
     Active Substance: SAXAGLIPTIN
  10. TOTALIP [Concomitant]
     Active Substance: ATORVASTATIN
  11. LYRICA [Concomitant]
     Active Substance: PREGABALIN
  12. PANTOPRAZOLE [Concomitant]
     Active Substance: PANTOPRAZOLE

REACTIONS (1)
  - Basal cell carcinoma [Unknown]

NARRATIVE: CASE EVENT DATE: 20180411
